FAERS Safety Report 12714597 (Version 2)
Quarter: 2016Q4

REPORT INFORMATION
  Report Type: Report from Study
  Country: IN (occurrence: IN)
  Receive Date: 20160905
  Receipt Date: 20161028
  Transmission Date: 20170207
  Serious: Yes (Other)
  Sender: FDA-Public Use
  Company Number: IN-ROCHE-1825734

PATIENT

DRUGS (4)
  1. WARFARIN [Concomitant]
     Active Substance: WARFARIN
     Dosage: FOR 6 MONTHS
     Route: 065
  2. HEPARIN [Concomitant]
     Active Substance: HEPARIN SODIUM
     Indication: INTRACRANIAL VENOUS SINUS THROMBOSIS
  3. ALTEPLASE [Suspect]
     Active Substance: ALTEPLASE
     Indication: INTRACRANIAL VENOUS SINUS THROMBOSIS
     Dosage: INTRASINUS BOLUS
     Route: 050
  4. ALTEPLASE [Suspect]
     Active Substance: ALTEPLASE
     Dosage: ROUTE- INTRASINUS; CONTINUED AT A RATE OF 1 MG/H (1 MG,1 IN 1 HR)
     Route: 050

REACTIONS (1)
  - Deep vein thrombosis [Unknown]
